FAERS Safety Report 7753676-5 (Version None)
Quarter: 2011Q3

REPORT INFORMATION
  Report Type: 
  Country: None (occurrence: None)
  Receive Date: 20110915
  Receipt Date: 20110915
  Transmission Date: 20111222
  Serious: Yes (Other)
  Sender: FDA-Public Use
  Company Number: None

PATIENT
  Age: 79 Year
  Sex: Female
  Weight: 63.502 kg

DRUGS (2)
  1. IBUPROFEN [Concomitant]
     Route: 048
  2. LEVOFLOXACIN [Suspect]
     Indication: EAR INFECTION
     Dosage: ONE 500MG TABLET BY MOUTH
     Route: 048
     Dates: start: 20110717, end: 20110723

REACTIONS (3)
  - NEPHROPATHY [None]
  - TENDON RUPTURE [None]
  - BLOOD CREATININE INCREASED [None]
